FAERS Safety Report 21569668 (Version 1)
Quarter: 2022Q4

REPORT INFORMATION
  Report Type: Spontaneous
  Country: CA (occurrence: CA)
  Receive Date: 20221109
  Receipt Date: 20221109
  Transmission Date: 20230113
  Serious: Yes (Other)
  Sender: FDA-Public Use
  Company Number: CA-JNJFOC-20221109022

PATIENT
  Age: 42 Year
  Sex: Female

DRUGS (1)
  1. REMICADE [Suspect]
     Active Substance: INFLIXIMAB
     Indication: Crohn^s disease
     Route: 041

REACTIONS (11)
  - Starvation [Unknown]
  - Asthenia [Unknown]
  - Fistula [Unknown]
  - Illness [Unknown]
  - Emotional distress [Unknown]
  - Stress [Unknown]
  - Musculoskeletal pain [Unknown]
  - Pain in extremity [Unknown]
  - Fatigue [Unknown]
  - Intentional product use issue [Unknown]
  - Off label use [Unknown]
